FAERS Safety Report 20332820 (Version 1)
Quarter: 2022Q1

REPORT INFORMATION
  Report Type: Spontaneous
  Country: IT (occurrence: IT)
  Receive Date: 20220113
  Receipt Date: 20220113
  Transmission Date: 20220423
  Serious: Yes (Other)
  Sender: FDA-Public Use
  Company Number: IT-002147023-NVSC2022IT004816

PATIENT

DRUGS (4)
  1. RUXOLITINIB [Suspect]
     Active Substance: RUXOLITINIB
     Indication: Omenn syndrome
     Dosage: 2.5 MG, BID (CORRESPONDING TO APPROXIMATELY 20 MG/M2/DAY)
     Route: 048
  2. CYCLOSPORINE [Concomitant]
     Active Substance: CYCLOSPORINE
     Indication: Omenn syndrome
     Dosage: 3 MG/KG, QD
     Route: 041
  3. CYCLOSPORINE [Concomitant]
     Active Substance: CYCLOSPORINE
     Dosage: UNK (DOSE WAS INCREASED)
     Route: 041
  4. METHYLPREDNISOLONE [Concomitant]
     Active Substance: METHYLPREDNISOLONE
     Indication: Dermatitis exfoliative generalised
     Dosage: 2 MG/KG, QD
     Route: 065

REACTIONS (4)
  - Concomitant disease aggravated [Recovered/Resolved]
  - Cytomegalovirus viraemia [Recovered/Resolved]
  - Product use issue [Unknown]
  - Off label use [Unknown]
